FAERS Safety Report 23458065 (Version 3)
Quarter: 2024Q3

REPORT INFORMATION
  Report Type: Report from Study
  Country: US (occurrence: US)
  Receive Date: 20240130
  Receipt Date: 20240809
  Transmission Date: 20241016
  Serious: Yes (Hospitalization)
  Sender: NOVARTIS
  Company Number: US-002147023-NVSC2024US014983

PATIENT
  Sex: Female

DRUGS (2)
  1. KISQALI [Interacting]
     Active Substance: RIBOCICLIB
     Indication: Breast cancer female
     Dosage: 600MG DAILY FOR 21 DAYS ON, 7 DAYS OFF
     Route: 048
  2. KISQALI [Interacting]
     Active Substance: RIBOCICLIB
     Indication: Breast cancer

REACTIONS (4)
  - Cardiac failure [Unknown]
  - Cardiac arrest [Unknown]
  - Myocardial infarction [Unknown]
  - Drug interaction [Unknown]
